FAERS Safety Report 20772584 (Version 1)
Quarter: 2022Q2

REPORT INFORMATION
  Report Type: Other
  Country: RU (occurrence: RU)
  Receive Date: 20220502
  Receipt Date: 20220502
  Transmission Date: 20220720
  Serious: Yes (Hospitalization)
  Sender: FDA-Public Use
  Company Number: RU-BoehringerIngelheim-2022-BI-167152

PATIENT
  Age: 26 Year
  Sex: Female

DRUGS (5)
  1. ALTEPLASE [Suspect]
     Active Substance: ALTEPLASE
     Indication: Subclavian artery thrombosis
     Dosage: BOLUS WAS INJECTED INTO THE THROMBOTIC MASSES OF THE SUBCLAVIAN AND AXILLARY VEINS THROUGH AN INSTAL
     Route: 040
     Dates: start: 20171211
  2. ALTEPLASE [Suspect]
     Active Substance: ALTEPLASE
     Indication: Axillary vein thrombosis
     Dosage: THEN 1 MG/100 ML/. USING AN INFUSION PUMP, MOST RECENT DOSE ADMINISTERED ON 11/DEC/2017
     Route: 042
     Dates: start: 20171211, end: 20171211
  3. HEPARIN [Concomitant]
     Active Substance: HEPARIN SODIUM
     Indication: Product used for unknown indication
  4. RIVAROXABAN [Concomitant]
     Active Substance: RIVAROXABAN
     Indication: Product used for unknown indication
  5. RIVAROXABAN [Concomitant]
     Active Substance: RIVAROXABAN

REACTIONS (2)
  - Subclavian vein occlusion [Recovering/Resolving]
  - Venous thrombosis [Recovering/Resolving]

NARRATIVE: CASE EVENT DATE: 20180501
